FAERS Safety Report 5751175-3 (Version None)
Quarter: 2008Q2

REPORT INFORMATION
  Report Type: 
  Country: None (occurrence: None)
  Receive Date: 20080527
  Receipt Date: 20080226
  Transmission Date: 20081010
  Serious: Yes (Other)
  Sender: FDA-Public Use
  Company Number: WAES 0802USA05742

PATIENT
  Age: 63 Year
  Sex: Male
  Weight: 100.2449 kg

DRUGS (8)
  1. JANUVIA [Suspect]
     Indication: DIABETES MELLITUS
     Dosage: 100 MG/DAILY/PO
     Route: 048
     Dates: start: 20080124, end: 20080131
  2. EFFEXOR XR [Concomitant]
  3. FELODIPINE [Concomitant]
  4. FLOMAX (MORNIFLUMATE) [Concomitant]
  5. PROGRAF [Concomitant]
  6. BENAZEPRIL HYDROCHLORIDE [Concomitant]
  7. FENOFIBRATE [Concomitant]
  8. OMEPRAZOLE [Concomitant]

REACTIONS (2)
  - DERMATITIS EXFOLIATIVE [None]
  - RASH MACULO-PAPULAR [None]
